FAERS Safety Report 4426176-8 (Version None)
Quarter: 2004Q3

REPORT INFORMATION
  Report Type: 
  Country: None (occurrence: None)
  Receive Date: 20040811
  Receipt Date: 20040719
  Transmission Date: 20050211
  Serious: Yes (Hospitalization)
  Sender: FDA-Public Use
  Company Number: M-04-230

PATIENT
  Age: 66 Year
  Sex: Female

DRUGS (9)
  1. KLOR-CON [Suspect]
     Indication: DIURETIC THERAPY
     Dosage: 20 MEQ BID PO
     Route: 048
  2. LASIX [Concomitant]
  3. PROTONIX [Concomitant]
  4. COZAAR [Concomitant]
  5. SYNTHROID [Concomitant]
  6. NORVASC [Concomitant]
  7. WARFARIN SODIUM [Concomitant]
  8. VICODIN [Concomitant]
  9. FERGON [Concomitant]

REACTIONS (6)
  - ABDOMINAL DISCOMFORT [None]
  - DIARRHOEA [None]
  - HAEMATOCHEZIA [None]
  - HYPERKALAEMIA [None]
  - RETCHING [None]
  - STOMACH DISCOMFORT [None]
